FAERS Safety Report 25787968 (Version 1)
Quarter: 2025Q3

REPORT INFORMATION
  Report Type: Spontaneous
  Country: US (occurrence: US)
  Receive Date: 20250910
  Receipt Date: 20250910
  Transmission Date: 20251020
  Serious: No
  Sender: BAYER HEALTHCARE PHARMACEUTICALS INC.
  Company Number: US-BAYER-2025A115792

PATIENT
  Age: 41 Year
  Sex: Male

DRUGS (4)
  1. STIVARGA [Suspect]
     Active Substance: REGORAFENIB MONOHYDRATE
     Indication: Rectal cancer
     Dosage: 160 MG, QD  FOR 21 DAYS AND THEN 7 DAYS OFF
     Route: 048
     Dates: start: 20250806
  2. TRAZODONE HCL [Concomitant]
     Active Substance: TRAZODONE HYDROCHLORIDE
     Indication: Insomnia
     Dates: start: 20250822
  3. LORAZEPAM [Concomitant]
     Active Substance: LORAZEPAM
     Indication: Nausea
  4. LORAZEPAM [Concomitant]
     Active Substance: LORAZEPAM
     Indication: Vomiting

REACTIONS (2)
  - Dry mouth [Recovered/Resolved]
  - Diarrhoea [Recovered/Resolved]

NARRATIVE: CASE EVENT DATE: 20250801
